FAERS Safety Report 5375268-8 (Version None)
Quarter: 2007Q2

REPORT INFORMATION
  Report Type: 
  Country: None (occurrence: None)
  Receive Date: 20070629
  Receipt Date: 20061012
  Transmission Date: 20071010
  Serious: No
  Sender: FDA-Public Use
  Company Number: US-ASTRAZENECA-2006UW19799

PATIENT
  Age: 74 Year
  Sex: Female
  Weight: 62.4 kg

DRUGS (5)
  1. TAMOXIFEN CITRATE [Suspect]
     Indication: BREAST CANCER
     Route: 048
     Dates: start: 19960101, end: 20010101
  2. SYNTHROID [Concomitant]
  3. TOPROL-XL [Concomitant]
     Route: 048
  4. NORVASC [Concomitant]
  5. WELCHOL [Concomitant]

REACTIONS (2)
  - DRY MOUTH [None]
  - TOOTH DISORDER [None]
